FAERS Safety Report 24685837 (Version 2)
Quarter: 2025Q1

REPORT INFORMATION
  Report Type: Report from Study
  Country: US (occurrence: US)
  Receive Date: 20241202
  Receipt Date: 20250313
  Transmission Date: 20250408
  Serious: Yes (Life-Threatening, Other)
  Sender: BLUEBIRD BIO
  Company Number: US-BLUEBIRD BIO-US-BBB-24-00025

PATIENT
  Age: 22 Year
  Sex: Male
  Weight: 45.7 kg

DRUGS (31)
  1. ZYNTEGLO [Suspect]
     Active Substance: BETIBEGLOGENE AUTOTEMCEL
     Indication: Thalassaemia beta
     Route: 042
     Dates: start: 20240205, end: 20240205
  2. MOZOBIL [Concomitant]
     Active Substance: PLERIXAFOR
     Indication: Haematopoietic stem cell mobilisation
     Dosage: UNK, QD
  3. FILGRASTIM [Concomitant]
     Active Substance: FILGRASTIM
     Indication: Haematopoietic stem cell mobilisation
     Dates: start: 20230714, end: 20230717
  4. BUSULFAN [Concomitant]
     Active Substance: BUSULFAN
     Indication: Bone marrow conditioning regimen
     Dosage: 3.2 MILLIGRAM/KILOGRAM, QD
     Route: 042
     Dates: start: 20240130, end: 20240202
  5. ROPIVACAINE [Concomitant]
     Active Substance: ROPIVACAINE
     Indication: Product used for unknown indication
     Route: 023
     Dates: start: 20240129, end: 20240129
  6. DEXTROSE;POTASSIUM CHLORIDE;SODIUM CHLORIDE [Concomitant]
     Indication: Product used for unknown indication
     Dosage: 0.85 MILLILITER, QH, CONTINUOUS
     Route: 042
     Dates: start: 20240129, end: 20240206
  7. ONDANSETRON [Concomitant]
     Active Substance: ONDANSETRON
     Indication: Product used for unknown indication
     Dosage: 6.8 MILLIGRAM, Q8H
     Route: 042
     Dates: start: 20240130, end: 20240225
  8. APREPITANT [Concomitant]
     Active Substance: APREPITANT
     Indication: Product used for unknown indication
     Route: 048
     Dates: start: 20240130
  9. APREPITANT [Concomitant]
     Active Substance: APREPITANT
     Dosage: 80 MILLIGRAM, QD
     Route: 048
     Dates: start: 20240130, end: 20240201
  10. LORAZEPAM [Concomitant]
     Active Substance: LORAZEPAM
     Indication: Product used for unknown indication
     Dosage: 1 MILLIGRAM, Q6H, PRN
     Route: 042
     Dates: start: 20240129, end: 20240301
  11. PROCHLORPERAZINE [Concomitant]
     Active Substance: PROCHLORPERAZINE
     Indication: Product used for unknown indication
     Dosage: 4.5 MILLIGRAM, Q6H
     Route: 042
     Dates: start: 20240129, end: 20240301
  12. DIPHENHYDRAMINE [Concomitant]
     Active Substance: DIPHENHYDRAMINE
     Indication: Product used for unknown indication
     Route: 042
     Dates: start: 20240205, end: 20240205
  13. DIPHENHYDRAMINE [Concomitant]
     Active Substance: DIPHENHYDRAMINE
     Dosage: 20 MILLIGRAM, Q6H PRN
     Route: 042
     Dates: start: 20240129, end: 20240214
  14. LEVETIRACETAM [Concomitant]
     Active Substance: LEVETIRACETAM
     Indication: Product used for unknown indication
     Dosage: 500 MILLIGRAM, Q12H
     Route: 048
     Dates: start: 20240129, end: 20240204
  15. COTRIMOXAZOLE [Concomitant]
     Active Substance: SULFAMETHOXAZOLE\TRIMETHOPRIM
     Indication: Product used for unknown indication
     Dosage: 120 MILLIGRAM, Q12H
     Route: 048
     Dates: start: 20240129, end: 20240203
  16. ACETAMINOPHEN [Concomitant]
     Active Substance: ACETAMINOPHEN
     Indication: Product used for unknown indication
     Route: 048
     Dates: start: 20240205, end: 20240205
  17. ACYCLOVIR [Concomitant]
     Active Substance: ACYCLOVIR
     Indication: Product used for unknown indication
     Dosage: 355 MILLIGRAM, Q8H
     Route: 042
     Dates: start: 20240129, end: 20240312
  18. CHLORHEXIDINE [Concomitant]
     Active Substance: CHLORHEXIDINE
     Indication: Product used for unknown indication
     Dosage: 15 MILLILITER, TID, SWISH AND SPIT
     Dates: start: 20240129, end: 20240420
  19. FLUCONAZOLE [Concomitant]
     Active Substance: FLUCONAZOLE
     Indication: Product used for unknown indication
     Dosage: 274 MILLIGRAM, QD
     Route: 042
     Dates: start: 20240129, end: 20240219
  20. GLUTAMINE [LEVOGLUTAMIDE] [Concomitant]
     Indication: Product used for unknown indication
     Dosage: 4.22 GRAM, BID
     Route: 048
     Dates: start: 20240129, end: 20240217
  21. PHYTONADIONE [Concomitant]
     Active Substance: PHYTONADIONE
     Indication: Product used for unknown indication
     Route: 048
     Dates: start: 20240131, end: 20240218
  22. LEVOFLOXACIN [Concomitant]
     Active Substance: LEVOFLOXACIN
     Indication: Product used for unknown indication
     Dosage: 500 MILLIGRAM, QD
     Route: 048
     Dates: start: 20240203, end: 20240214
  23. POTASSIUM CITRATE [CITRIC ACID;POTASSIUM CITRATE] [Concomitant]
     Indication: Product used for unknown indication
     Dosage: 20 MILLIEQUIVALENT, BID
     Route: 048
     Dates: start: 20240130, end: 20240205
  24. TUMS [Concomitant]
     Active Substance: CALCIUM CARBONATE
     Indication: Product used for unknown indication
     Dosage: 200 MILLIGRAM, QD
     Route: 048
     Dates: start: 20240130, end: 20240205
  25. CHOLECALCIFEROL [Concomitant]
     Active Substance: CHOLECALCIFEROL
     Indication: Product used for unknown indication
     Dosage: 25 MICROGRAM, QD
     Route: 048
     Dates: start: 20240130, end: 20240311
  26. ALUMINUM HYDROXIDE\DIMETHICONE\MAGNESIUM HYDROXIDE [Concomitant]
     Active Substance: ALUMINUM HYDROXIDE\DIMETHICONE\MAGNESIUM HYDROXIDE
     Indication: Product used for unknown indication
     Dosage: 5 MILLILITER, TID PRN, SWISH AND SPIT
     Dates: start: 20240129, end: 20240420
  27. URSODIOL [Concomitant]
     Active Substance: URSODIOL
     Indication: Product used for unknown indication
     Dosage: 300 MILLIGRAM, Q12H
     Route: 048
     Dates: start: 20240130, end: 20240225
  28. HYDROCHLOROTHIAZIDE [Concomitant]
     Active Substance: HYDROCHLOROTHIAZIDE
     Indication: Product used for unknown indication
     Dosage: 25 MILLIGRAM, QD
     Route: 048
     Dates: start: 20240130, end: 20240201
  29. DEXTROSE [Concomitant]
     Active Substance: DEXTROSE MONOHYDRATE
     Indication: Product used for unknown indication
     Route: 042
     Dates: start: 20240202, end: 20240219
  30. AMINO ACIDS\DEXTROSE\ELECTROLYTES NOS\SOYBEAN OIL [Concomitant]
     Active Substance: AMINO ACIDS\DEXTROSE\ELECTROLYTES NOS\SOYBEAN OIL
     Indication: Product used for unknown indication
     Route: 042
     Dates: start: 20240205, end: 20240206
  31. FAT EMULSION NOS [Concomitant]
     Active Substance: EGG PHOSPHOLIPIDS\SAFFLOWER OIL\SOYBEAN OIL
     Indication: Product used for unknown indication
     Route: 042
     Dates: start: 20240205, end: 20240206

REACTIONS (9)
  - Subarachnoid haemorrhage [Recovered/Resolved]
  - Thrombotic microangiopathy [Recovered/Resolved]
  - Mucocutaneous haemorrhage [Recovered/Resolved]
  - Cytomegalovirus infection [Recovered/Resolved]
  - Hyperbilirubinaemia [Recovered/Resolved]
  - Acute respiratory failure [Recovered/Resolved]
  - Mental status changes [Recovering/Resolving]
  - Platelet count decreased [Recovering/Resolving]
  - Mucosal inflammation [Recovering/Resolving]

NARRATIVE: CASE EVENT DATE: 20240219
